FAERS Safety Report 24443357 (Version 1)
Quarter: 2024Q4

REPORT INFORMATION
  Report Type: Spontaneous
  Country: US (occurrence: US)
  Receive Date: 20241016
  Receipt Date: 20241016
  Transmission Date: 20250115
  Serious: Yes (Hospitalization)
  Sender: MIRUM PHARMACEUTICALS
  Company Number: US-MIRUM PHARMACEUTICALS, INC.-US-MIR-24-00916

PATIENT
  Age: 5 Week
  Sex: Female
  Weight: 2 kg

DRUGS (1)
  1. CHOLBAM [Suspect]
     Active Substance: CHOLIC ACID
     Indication: Smith-Lemli-Opitz syndrome
     Dosage: UNK
     Route: 065
     Dates: start: 20240916

REACTIONS (3)
  - Failure to thrive [Unknown]
  - Electrolyte imbalance [Unknown]
  - Off label use [Unknown]
